FAERS Safety Report 5463908-4 (Version None)
Quarter: 2007Q3

REPORT INFORMATION
  Report Type: 
  Country: None (occurrence: None)
  Receive Date: 20070919
  Receipt Date: 20070904
  Transmission Date: 20080115
  Serious: Yes (Hospitalization)
  Sender: FDA-Public Use
  Company Number: 1-15301331

PATIENT
  Age: 14 Year
  Sex: Male
  Weight: 74.8435 kg

DRUGS (1)
  1. IBUPROFEN 200 MG TABLETS (MFR UNK) [Suspect]
     Indication: INTENTIONAL OVERDOSE
     Dosage: APPROX. 50G, ORAL
     Route: 048

REACTIONS (11)
  - ACIDOSIS [None]
  - APNOEA [None]
  - BLOOD CREATINE PHOSPHOKINASE INCREASED [None]
  - COMA [None]
  - GASTROINTESTINAL HAEMORRHAGE [None]
  - HYPOTENSION [None]
  - INTENTIONAL OVERDOSE [None]
  - LIVER FUNCTION TEST ABNORMAL [None]
  - PULMONARY HAEMORRHAGE [None]
  - RENAL FAILURE [None]
  - SHOCK [None]
